FAERS Safety Report 18370103 (Version 1)
Quarter: 2020Q4

REPORT INFORMATION
  Report Type: Spontaneous
  Country: US (occurrence: US)
  Receive Date: 20201012
  Receipt Date: 20201012
  Transmission Date: 20210114
  Serious: No
  Sender: FDA-Public Use
  Company Number: US-SA-2020SA281827

PATIENT

DRUGS (2)
  1. DUPIXENT [Suspect]
     Active Substance: DUPILUMAB
     Indication: DERMATITIS ATOPIC
     Dosage: 200 MG, QOW
     Route: 058
     Dates: start: 20200909
  2. TACROLIMUS. [Concomitant]
     Active Substance: TACROLIMUS

REACTIONS (10)
  - Skin fissures [Unknown]
  - Eczema [Unknown]
  - Skin exfoliation [Unknown]
  - Dry skin [Unknown]
  - Nasopharyngitis [Unknown]
  - Dermatitis atopic [Unknown]
  - Injection site pain [Unknown]
  - Conjunctivitis [Unknown]
  - Pruritus [Unknown]
  - Skin haemorrhage [Unknown]

NARRATIVE: CASE EVENT DATE: 2020
